FAERS Safety Report 23701453 (Version 1)
Quarter: 2024Q2

REPORT INFORMATION
  Report Type: Spontaneous
  Country: US (occurrence: US)
  Receive Date: 20240403
  Receipt Date: 20240403
  Transmission Date: 20240716
  Serious: No
  Sender: FDA-Public Use
  Company Number: US-ALMIRALL-US-2024-0715

PATIENT

DRUGS (1)
  1. KLISYRI [Suspect]
     Active Substance: TIRBANIBULIN
     Indication: Skin papilloma

REACTIONS (3)
  - Drug ineffective [Unknown]
  - Erythema [Unknown]
  - Skin reaction [None]
